FAERS Safety Report 21958284 (Version 1)
Quarter: 2023Q1

REPORT INFORMATION
  Report Type: Spontaneous
  Country: US (occurrence: None)
  Receive Date: 20230203
  Receipt Date: 20230203
  Transmission Date: 20230417
  Serious: No
  Sender: FDA-Public Use
  Company Number: None

PATIENT
  Age: 74 Year
  Sex: Male

DRUGS (1)
  1. CAPECITABINE [Suspect]
     Active Substance: CAPECITABINE
     Indication: Product used for unknown indication

REACTIONS (5)
  - Flushing [None]
  - Muscle tightness [None]
  - Pain in extremity [None]
  - Blood pressure increased [None]
  - Renal impairment [None]

NARRATIVE: CASE EVENT DATE: 20221231
